FAERS Safety Report 6619439-9 (Version None)
Quarter: 2010Q1

REPORT INFORMATION
  Report Type: 
  Country: None (occurrence: None)
  Receive Date: 20100225
  Receipt Date: 20100219
  Transmission Date: 20100710
  Serious: Yes (Hospitalization)
  Sender: FDA-Public Use
  Company Number: 2010-01173

PATIENT
  Age: 72 Year
  Sex: Male

DRUGS (2)
  1. IMMUCYST [Suspect]
     Indication: BLADDER CANCER
     Dosage: NR
     Route: 037
  2. OFLOCET (OFLOXACINE) [Concomitant]

REACTIONS (8)
  - INCONTINENCE [None]
  - INFLAMMATION [None]
  - NECROSIS [None]
  - PERITONEAL PERFORATION [None]
  - PYREXIA [None]
  - URINARY BLADDER POLYP [None]
  - URINARY BLADDER RUPTURE [None]
  - URINARY INCONTINENCE [None]
